FAERS Safety Report 10079285 (Version 2)
Quarter: 2014Q2

REPORT INFORMATION
  Report Type: Spontaneous
  Country: TW (occurrence: TW)
  Receive Date: 20140415
  Receipt Date: 20140428
  Transmission Date: 20141212
  Serious: Yes (Death, Hospitalization)
  Sender: FDA-Public Use
  Company Number: TW-BAXTER-2014BAX018658

PATIENT
  Sex: Male

DRUGS (2)
  1. DIANEAL LOW CALCIUM (2.5 MEQ/L) PD SOLUTION WITH 1.5% DEXTROSE ^BAXTER [Suspect]
     Indication: PERITONEAL DIALYSIS
     Route: 033
  2. DIANEAL LOW CALCIUM (2.5 MEQ/L) PD SOLUTION WITH 2.5% DEXTROSE ^BAXTER [Suspect]
     Indication: PERITONEAL DIALYSIS
     Route: 033

REACTIONS (1)
  - Neoplasm malignant [Fatal]
